FAERS Safety Report 5267689-9 (Version None)
Quarter: 2007Q1

REPORT INFORMATION
  Report Type: 
  Country: None (occurrence: None)
  Receive Date: 20070316
  Receipt Date: 20070306
  Transmission Date: 20070707
  Serious: Yes (Other)
  Sender: FDA-Public Use
  Company Number: US-PFIZER INC-2006112952

PATIENT
  Sex: Male
  Weight: 99.8 kg

DRUGS (7)
  1. LIPITOR [Suspect]
     Indication: BLOOD CHOLESTEROL INCREASED
  2. LIPITOR [Suspect]
     Indication: MYOCARDIAL INFARCTION
  3. LIPITOR [Suspect]
     Indication: HYPERCHOLESTEROLAEMIA
  4. NEURONTIN [Suspect]
     Indication: BACK PAIN
  5. DILANTIN [Suspect]
  6. REMERON [Concomitant]
     Indication: SLEEP DISORDER
  7. MORPHINE [Concomitant]
     Indication: PAIN

REACTIONS (8)
  - DRUG HYPERSENSITIVITY [None]
  - DYSPHAGIA [None]
  - HYPERLIPIDAEMIA [None]
  - MUSCLE SPASMS [None]
  - MUSCULAR WEAKNESS [None]
  - MYALGIA [None]
  - PAIN IN EXTREMITY [None]
  - WEIGHT INCREASED [None]
